FAERS Safety Report 26206483 (Version 1)
Quarter: 2025Q4

REPORT INFORMATION
  Report Type: Spontaneous
  Country: EU (occurrence: EU)
  Receive Date: 20251229
  Receipt Date: 20251229
  Transmission Date: 20260118
  Serious: Yes (Other)
  Sender: JOHNSON AND JOHNSON
  Company Number: EU-STADA-01509779

PATIENT
  Age: 76 Year
  Sex: Male

DRUGS (3)
  1. ABIRATERONE [Suspect]
     Active Substance: ABIRATERONE
     Indication: Prostate cancer stage IV
  2. ROSUVASTATIN [Suspect]
     Active Substance: ROSUVASTATIN
     Indication: Product used for unknown indication
  3. Leuprolerin [Concomitant]
     Indication: Prostate cancer stage IV

REACTIONS (6)
  - Myopathy [Unknown]
  - Anuria [Unknown]
  - Paraplegia [Unknown]
  - Drug level increased [Unknown]
  - Acute kidney injury [Unknown]
  - Drug interaction [Unknown]

NARRATIVE: CASE EVENT DATE: 20240101
